FAERS Safety Report 8773123 (Version 1)
Quarter: 2012Q4

REPORT INFORMATION
  Report Type: 
  Country: GB (occurrence: GB)
  Receive Date: 20120907
  Receipt Date: 20120907
  Transmission Date: 20130627
  Serious: Yes (Hospitalization)
  Sender: FDA-Public Use
  Company Number: GB-ASTELLAS-2012EU006373

PATIENT
  Sex: Female

DRUGS (2)
  1. PROGRAF [Suspect]
     Indication: RENAL TRANSPLANT
     Dosage: 1 mg, Unknown/D
     Route: 065
  2. PROGRAF [Suspect]
     Dosage: 0.5 mg, Unknown/D
     Route: 065

REACTIONS (5)
  - Oedema peripheral [Unknown]
  - Confusional state [Unknown]
  - Dyspnoea [Unknown]
  - International normalised ratio increased [Unknown]
  - Blister [Unknown]
